FAERS Safety Report 25176703 (Version 2)
Quarter: 2025Q2

REPORT INFORMATION
  Report Type: Spontaneous
  Country: IT (occurrence: IT)
  Receive Date: 20250409
  Receipt Date: 20250423
  Transmission Date: 20250717
  Serious: Yes (Other)
  Sender: AUROBINDO
  Company Number: IT-MLMSERVICE-20250320-PI452110-00222-1

PATIENT
  Age: 80 Year

DRUGS (4)
  1. METRONIDAZOLE [Suspect]
     Active Substance: METRONIDAZOLE
     Indication: Cholangitis
     Dosage: 2 GRAM, ONCE A DAY (TOTAL AMOUNT 116 G EV (2G/DAY FOR 58 DAYS)
     Route: 065
  2. METRONIDAZOLE [Suspect]
     Active Substance: METRONIDAZOLE
     Indication: Liver abscess
  3. AMOXICILLIN\CLAVULANIC ACID [Concomitant]
     Active Substance: AMOXICILLIN\CLAVULANIC ACID
     Indication: Cholangitis
     Route: 065
  4. AMOXICILLIN\CLAVULANIC ACID [Concomitant]
     Active Substance: AMOXICILLIN\CLAVULANIC ACID
     Indication: Liver abscess

REACTIONS (7)
  - Visual acuity reduced [Unknown]
  - Ataxia [Unknown]
  - Confusional state [Unknown]
  - Hallucination [Unknown]
  - Vomiting [Unknown]
  - Dizziness [Unknown]
  - Neurotoxicity [Unknown]
